FAERS Safety Report 20879952 (Version 1)
Quarter: 2022Q2

REPORT INFORMATION
  Report Type: Spontaneous
  Country: HU (occurrence: HU)
  Receive Date: 20220526
  Receipt Date: 20220526
  Transmission Date: 20220721
  Serious: Yes (Death, Other)
  Sender: FDA-Public Use
  Company Number: HU-ABBVIE-22K-076-4412542-00

PATIENT
  Age: 52 Year
  Sex: Male
  Weight: 140 kg

DRUGS (1)
  1. SKYRIZI [Suspect]
     Active Substance: RISANKIZUMAB-RZAA
     Indication: Psoriasis
     Dosage: 150 MG PER 3 MONTH
     Route: 058
     Dates: start: 20200603

REACTIONS (6)
  - Cardiac failure [Fatal]
  - COVID-19 [Unknown]
  - Left ventricular hypertrophy [Unknown]
  - Bronchitis [Unknown]
  - Hepatic steatosis [Unknown]
  - Splenomegaly [Unknown]

NARRATIVE: CASE EVENT DATE: 20220101
